FAERS Safety Report 16966458 (Version 2)
Quarter: 2019Q4

REPORT INFORMATION
  Report Type: Spontaneous
  Country: FR (occurrence: FR)
  Receive Date: 20191028
  Receipt Date: 20191106
  Transmission Date: 20200122
  Serious: Yes (Death)
  Sender: FDA-Public Use
  Company Number: FR-MYLANLABS-2019M1101009

PATIENT
  Sex: Female

DRUGS (1)
  1. IMATINIB. [Suspect]
     Active Substance: IMATINIB MESYLATE
     Indication: CHRONIC MYELOID LEUKAEMIA
     Dosage: UNK
     Route: 065

REACTIONS (1)
  - Blast crisis in myelogenous leukaemia [Fatal]
